FAERS Safety Report 8943952 (Version 4)
Quarter: 2012Q4

REPORT INFORMATION
  Report Type: 
  Country: JP (occurrence: JP)
  Receive Date: 20121204
  Receipt Date: 20121228
  Transmission Date: 20130627
  Serious: Yes (Death, Other)
  Sender: FDA-Public Use
  Company Number: JP-PFIZER INC-2012297919

PATIENT
  Age: 85 Year
  Sex: Male
  Weight: 53 kg

DRUGS (15)
  1. ZITHROMAC SR [Suspect]
     Indication: BACTERIAL PNEUMONIA, UNSPECIFIED
     Dosage: 2 g, single
  2. ZITHROMAC SR [Suspect]
     Indication: ATYPICAL PNEUMONIA
  3. ZOSYN [Suspect]
     Indication: PNEUMONIA BACTERIAL
     Dosage: UNK
     Route: 041
     Dates: start: 20120102
  4. ZOSYN [Suspect]
     Indication: ATYPICAL PNEUMONIA
  5. CRAVIT [Suspect]
     Indication: ATYPICAL PNEUMONIA
     Dosage: UNK
     Dates: start: 20120102
  6. CEFAMEZIN [Suspect]
     Indication: CATHETER INFECTION
     Dosage: 2 g, UNK
     Dates: start: 20111231
  7. PLAVIX [Suspect]
     Indication: INFARCTION
     Dosage: 75 mg, UNK
     Route: 048
     Dates: start: 20111227, end: 20120114
  8. BAYASPIRIN [Suspect]
     Indication: ACUTE MYOCARDIAL INFARCTION
     Dosage: 100 mg, UNK
     Route: 048
     Dates: start: 20111227, end: 20120108
  9. EVEROLIMUS [Concomitant]
  10. GLYCERYL TRINITRATE [Concomitant]
     Dosage: UNK
     Dates: start: 201112
  11. CRESTOR [Concomitant]
     Dosage: 2.5 mg/day
     Route: 048
     Dates: start: 20111227, end: 20120119
  12. TAKEPRON [Concomitant]
     Dosage: 15 mg/day
     Dates: start: 20111227, end: 20120119
  13. ZITHROMAC [Concomitant]
     Indication: PNEUMONIA BACTERIAL
     Dosage: 2 g, UNK
     Dates: start: 20120102
  14. ZITHROMAC [Concomitant]
     Indication: ATYPICAL PNEUMONIA
  15. MAINTATE [Concomitant]
     Indication: ACUTE MYOCARDIAL INFARCTION
     Dosage: 0.625 mg/day
     Route: 048
     Dates: end: 20120206

REACTIONS (1)
  - Acute respiratory distress syndrome [Fatal]
